FAERS Safety Report 20737566 (Version 1)
Quarter: 2022Q2

REPORT INFORMATION
  Report Type: Spontaneous
  Country: US (occurrence: US)
  Receive Date: 20220422
  Receipt Date: 20220422
  Transmission Date: 20220721
  Serious: No
  Sender: FDA-Public Use
  Company Number: US-AMGEN-USASP2022065262

PATIENT
  Age: 63 Year
  Sex: Male

DRUGS (2)
  1. EVOLOCUMAB [Suspect]
     Active Substance: EVOLOCUMAB
     Indication: Type IIa hyperlipidaemia
     Dosage: 140 MILLIGRAM, Q2WK
     Route: 065
  2. INCLISIRAN [Concomitant]
     Active Substance: INCLISIRAN
     Dosage: 300 MILLIGRAM, Q6MO

REACTIONS (1)
  - Therapy non-responder [Unknown]
